FAERS Safety Report 10255714 (Version 4)
Quarter: 2014Q4

REPORT INFORMATION
  Report Type: Spontaneous
  Country: US (occurrence: None)
  Receive Date: 20140620
  Receipt Date: 20141120
  Transmission Date: 20150528
  Serious: Yes (Other)
  Sender: FDA-Public Use
  Company Number: UNT-2014-002296

PATIENT
  Age: 50 Year
  Sex: Female
  Weight: 117.9 kg

DRUGS (7)
  1. ASPIRIN. [Concomitant]
     Active Substance: ASPIRIN
  2. SYNTHROID [Concomitant]
     Active Substance: LEVOTHYROXINE SODIUM
  3. REVATIO [Concomitant]
     Active Substance: SILDENAFIL CITRATE
  4. FISH OIL (FISH OIL) [Concomitant]
     Active Substance: FISH OIL
  5. NORVASC [Concomitant]
     Active Substance: AMLODIPINE BESYLATE
  6. TYVASO [Suspect]
     Active Substance: TREPROSTINIL
     Indication: PULMONARY ARTERIAL HYPERTENSION
     Route: 055
     Dates: start: 20140528
  7. OPSUMIT (MACITENTAN) UNKNOWN [Concomitant]

REACTIONS (7)
  - Haemorrhage [None]
  - Headache [None]
  - Nausea [None]
  - Dizziness [None]
  - Fatigue [None]
  - Vomiting [None]
  - Dyspnoea [None]

NARRATIVE: CASE EVENT DATE: 20140604
